FAERS Safety Report 5999482-3 (Version None)
Quarter: 2008Q4

REPORT INFORMATION
  Report Type: 
  Country: None (occurrence: None)
  Receive Date: 20081211
  Receipt Date: 20081211
  Transmission Date: 20090506
  Serious: Yes (Other)
  Sender: FDA-Public Use
  Company Number: None

PATIENT
  Age: 72 Year
  Sex: Female
  Weight: 95.2554 kg

DRUGS (1)
  1. REGLAN [Suspect]
     Indication: DIABETIC GASTROPATHY
     Dosage: 4 X A DAY MEALS AND BEDTIME
     Dates: start: 20060923, end: 20070705

REACTIONS (13)
  - ANHEDONIA [None]
  - ANXIETY [None]
  - ARTHRALGIA [None]
  - DEPRESSION [None]
  - DYSKINESIA [None]
  - FATIGUE [None]
  - FEAR OF CROWDED PLACES [None]
  - FEELING JITTERY [None]
  - INFREQUENT BOWEL MOVEMENTS [None]
  - PAINFUL DEFAECATION [None]
  - RESTLESSNESS [None]
  - URINE OUTPUT DECREASED [None]
  - WEIGHT DECREASED [None]
